FAERS Safety Report 8760897 (Version 1)
Quarter: 2012Q4

REPORT INFORMATION
  Report Type: 
  Country: US (occurrence: US)
  Receive Date: 20120830
  Receipt Date: 20120830
  Transmission Date: 20130627
  Serious: No
  Sender: FDA-Public Use
  Company Number: US-BAYER-2012-088620

PATIENT
  Age: 71 Year
  Sex: Male
  Weight: 83.9 kg

DRUGS (10)
  1. ALEVE CAPLET/TABLET,MIDOL EXTENDED RELIEF CAPLET [Suspect]
     Indication: MYALGIA
     Dosage: 1 DF, BID
     Route: 048
     Dates: start: 20120818
  2. METAMUCIL [Concomitant]
  3. SIMVASTATIN [Concomitant]
  4. NIACIN [Concomitant]
  5. ATENOLOL [Concomitant]
  6. FLUOXETINE [Concomitant]
  7. DOXAZOSIN [Concomitant]
  8. FUROSEMIDE [Concomitant]
  9. LIVEROIL [Concomitant]
  10. FISH OIL [Concomitant]

REACTIONS (2)
  - Constipation [Not Recovered/Not Resolved]
  - Flatulence [Not Recovered/Not Resolved]
